FAERS Safety Report 11793683 (Version 1)
Quarter: 2015Q4

REPORT INFORMATION
  Report Type: Report from Study
  Country: AR (occurrence: AR)
  Receive Date: 20151202
  Receipt Date: 20151202
  Transmission Date: 20160305
  Serious: Yes (Hospitalization)
  Sender: FDA-Public Use
  Company Number: AR-BIOGENIDEC-2015BI157022

PATIENT
  Age: 35 Year
  Sex: Female

DRUGS (2)
  1. AVONEX [Concomitant]
     Active Substance: INTERFERON BETA-1A
  2. FAMPYRA [Suspect]
     Active Substance: DALFAMPRIDINE
     Indication: MULTIPLE SCLEROSIS
     Route: 048
     Dates: start: 20150901

REACTIONS (1)
  - Hypoaesthesia [Not Recovered/Not Resolved]

NARRATIVE: CASE EVENT DATE: 201511
